FAERS Safety Report 14805253 (Version 8)
Quarter: 2018Q2

REPORT INFORMATION
  Report Type: Report from Study
  Country: RO (occurrence: RO)
  Receive Date: 20180425
  Receipt Date: 20180620
  Transmission Date: 20180711
  Serious: Yes (Life-Threatening, Hospitalization)
  Sender: FDA-Public Use
  Company Number: RO-JNJFOC-20180238473

PATIENT
  Age: 67 Year
  Sex: Female
  Weight: 105 kg

DRUGS (15)
  1. OMEPRAZOLE. [Concomitant]
     Active Substance: OMEPRAZOLE
     Indication: PRODUCT USED FOR UNKNOWN INDICATION
     Route: 065
     Dates: start: 20180212
  2. SINGULAIR [Concomitant]
     Active Substance: MONTELUKAST SODIUM
     Indication: PRODUCT USED FOR UNKNOWN INDICATION
     Route: 048
     Dates: start: 20180212
  3. SUMETROLIM [Concomitant]
     Active Substance: SULFAMETHOXAZOLE\TRIMETHOPRIM
     Route: 065
     Dates: start: 20180205
  4. PARACETAMOL [Concomitant]
     Active Substance: ACETAMINOPHEN
     Route: 048
     Dates: start: 20180212
  5. DEXAMETHASONE. [Suspect]
     Active Substance: DEXAMETHASONE
     Indication: PLASMA CELL MYELOMA
     Dosage: ADMINISTERED THROUGH A PERIPHERAL LINE; PER CHEMO REGIM
     Route: 048
     Dates: start: 20180212
  6. ASPENTER [Concomitant]
     Active Substance: ASPIRIN
     Route: 065
     Dates: start: 20180205, end: 20180224
  7. LORATADINE. [Concomitant]
     Active Substance: LORATADINE
     Route: 048
     Dates: start: 20180212
  8. DARATUMUMAB [Suspect]
     Active Substance: DARATUMUMAB
     Indication: PLASMA CELL MYELOMA
     Dosage: PER CHEMO REGIM
     Route: 042
     Dates: start: 20180212, end: 20180219
  9. CARFILZOMIB [Suspect]
     Active Substance: CARFILZOMIB
     Indication: PLASMA CELL MYELOMA
     Dosage: ADMINISTERED ONLY THROUGH A PERIPHERAL LINE; DOSAGE TEXT ALSO REPORTED AS: UNK, UNK, PER CHEMO REGIM
     Route: 042
     Dates: start: 20180212
  10. ACYCLOVIR. [Concomitant]
     Active Substance: ACYCLOVIR
     Route: 065
     Dates: start: 20180205
  11. VANCOMICINA [Concomitant]
     Active Substance: VANCOMYCIN
     Dates: start: 20180226, end: 20180308
  12. EPOETIN ALFA [Concomitant]
     Active Substance: ERYTHROPOIETIN
     Dates: start: 20180326
  13. MEROPENEM. [Concomitant]
     Active Substance: MEROPENEM
     Dates: start: 20180226, end: 20180311
  14. CARFILZOMIB [Suspect]
     Active Substance: CARFILZOMIB
     Indication: PLASMA CELL MYELOMA
     Dosage: PER CHEMO REGIM
     Route: 042
     Dates: start: 20180416
  15. ALLOPURINOL. [Concomitant]
     Active Substance: ALLOPURINOL
     Route: 065
     Dates: start: 20180205

REACTIONS (5)
  - Hyperkalaemia [Recovered/Resolved]
  - Lung infection [Recovered/Resolved]
  - Hyponatraemia [Recovered/Resolved]
  - Thrombocytopenia [Recovered/Resolved]
  - Respiratory failure [Recovered/Resolved]

NARRATIVE: CASE EVENT DATE: 20180225
